FAERS Safety Report 24083609 (Version 1)
Quarter: 2024Q3

REPORT INFORMATION
  Report Type: Spontaneous
  Country: US (occurrence: US)
  Receive Date: 20240712
  Receipt Date: 20240712
  Transmission Date: 20241016
  Serious: No
  Sender: BAYER
  Company Number: US-BAYER-2024A095574

PATIENT
  Age: 36 Year
  Sex: Female
  Weight: 65.77 kg

DRUGS (1)
  1. SKYLA [Suspect]
     Active Substance: LEVONORGESTREL
     Dosage: 14?G/DAY
     Route: 015
     Dates: start: 2021, end: 20240222

REACTIONS (1)
  - Procedural haemorrhage [None]

NARRATIVE: CASE EVENT DATE: 20240222
